FAERS Safety Report 11642785 (Version 5)
Quarter: 2017Q2

REPORT INFORMATION
  Report Type: Report from Study
  Country: AR (occurrence: AR)
  Receive Date: 20151020
  Receipt Date: 20170504
  Transmission Date: 20170829
  Serious: Yes (Other)
  Sender: FDA-Public Use
  Company Number: AR-ROCHE-1646746

PATIENT
  Age: 67 Year
  Sex: Male

DRUGS (7)
  1. XOLAIR [Suspect]
     Active Substance: OMALIZUMAB
     Dosage: 5 DOSES MONTHLY
     Route: 058
     Dates: start: 20170326, end: 20170326
  2. SERETIDE [Concomitant]
     Active Substance: FLUTICASONE PROPIONATE\SALMETEROL XINAFOATE
     Indication: PRODUCT USED FOR UNKNOWN INDICATION
     Route: 065
  3. MONTELUKAST [Concomitant]
     Active Substance: MONTELUKAST SODIUM
     Indication: PRODUCT USED FOR UNKNOWN INDICATION
     Route: 065
  4. XOLAIR [Suspect]
     Active Substance: OMALIZUMAB
     Dosage: 3 DF, UNK
     Route: 058
     Dates: start: 20150914
  5. SALBUTAMOL [Concomitant]
     Active Substance: ALBUTEROL
     Indication: PRODUCT USED FOR UNKNOWN INDICATION
     Route: 065
  6. XOLAIR [Suspect]
     Active Substance: OMALIZUMAB
     Indication: ASTHMA
     Dosage: 5 DOSES MONTHLY
     Route: 058
     Dates: start: 20141223
  7. XOLAIR [Suspect]
     Active Substance: OMALIZUMAB
     Dosage: 5 DF, QMO (IN MID OF THE YEAR)
     Route: 058
     Dates: start: 2015

REACTIONS (9)
  - Pneumonia [Recovering/Resolving]
  - Balance disorder [Recovered/Resolved]
  - Sensitivity to weather change [Not Recovered/Not Resolved]
  - Somnolence [Recovered/Resolved]
  - Malaise [Not Recovered/Not Resolved]
  - Asthmatic crisis [Recovering/Resolving]
  - Choking [Not Recovered/Not Resolved]
  - Asthma [Not Recovered/Not Resolved]
  - Feeling abnormal [Not Recovered/Not Resolved]

NARRATIVE: CASE EVENT DATE: 20150914
